FAERS Safety Report 25609851 (Version 2)
Quarter: 2025Q3

REPORT INFORMATION
  Report Type: Spontaneous
  Country: CO (occurrence: CO)
  Receive Date: 20250728
  Receipt Date: 20250811
  Transmission Date: 20251021
  Serious: Yes (Death)
  Sender: CELLTRION
  Company Number: CO-CELLTRION INC.-2025CO025183

PATIENT

DRUGS (1)
  1. TRUXIMA [Suspect]
     Active Substance: RITUXIMAB-ABBS
     Indication: Systemic lupus erythematosus
     Route: 042
     Dates: start: 20240903, end: 20240917

REACTIONS (2)
  - Death [Fatal]
  - Intentional product use issue [Unknown]
